FAERS Safety Report 8102505-9 (Version None)
Quarter: 2012Q1

REPORT INFORMATION
  Report Type: 
  Country: None (occurrence: None)
  Receive Date: 20120201
  Receipt Date: 20120120
  Transmission Date: 20120608
  Serious: Yes (Hospitalization)
  Sender: FDA-Public Use
  Company Number: US-BAYER-2011-087345

PATIENT
  Age: 25 Year
  Sex: Female
  Weight: 70.295 kg

DRUGS (7)
  1. MALFLYTELY-BISACOLDYL [Concomitant]
     Dosage: UNK
     Dates: start: 20090411
  2. YASMIN [Suspect]
     Indication: CONTRACEPTION
     Dosage: UNK
     Dates: start: 20050101, end: 20090101
  3. AMBIEN [Concomitant]
     Dosage: 5 MG, HS
     Route: 048
  4. LIALDA [Concomitant]
     Indication: COLITIS ULCERATIVE
     Dosage: 1.2 G, BID
     Route: 048
     Dates: start: 20090301
  5. DROSPIRENONE AND ETHINYL ESTRADIOL [Suspect]
     Indication: CONTRACEPTION
     Dosage: UNK
     Dates: start: 20050101, end: 20090101
  6. PREDNISONE TAB [Concomitant]
     Indication: COLITIS ULCERATIVE
     Dosage: UNK
     Route: 048
     Dates: start: 20090301
  7. YAZ [Suspect]
     Indication: CONTRACEPTION
     Dosage: UNK
     Dates: start: 20050101, end: 20090101

REACTIONS (3)
  - DEEP VEIN THROMBOSIS [None]
  - PAIN [None]
  - MENTAL DISORDER [None]
